FAERS Safety Report 19949643 (Version 1)
Quarter: 2021Q4

REPORT INFORMATION
  Report Type: Spontaneous
  Country: US (occurrence: US)
  Receive Date: 20211012
  Receipt Date: 20211012
  Transmission Date: 20220304
  Serious: Yes (Hospitalization)
  Sender: FDA-Public Use
  Company Number: None

PATIENT
  Age: 63 Year
  Sex: Male

DRUGS (2)
  1. PREVYMIS [Suspect]
     Active Substance: LETERMOVIR
     Indication: Laboratory test abnormal
     Route: 048
     Dates: start: 20210904
  2. HYDROXYUREA [Concomitant]
     Active Substance: HYDROXYUREA

REACTIONS (1)
  - Bone marrow transplant [None]

NARRATIVE: CASE EVENT DATE: 20211012
